FAERS Safety Report 16181492 (Version 1)
Quarter: 2019Q2

REPORT INFORMATION
  Report Type: Spontaneous
  Country: DK (occurrence: DK)
  Receive Date: 20190410
  Receipt Date: 20190410
  Transmission Date: 20190711
  Serious: Yes (Hospitalization, Disabling)
  Sender: FDA-Public Use
  Company Number: DK-MYLANLABS-2019M1033003

PATIENT
  Age: 74 Year
  Sex: Female

DRUGS (13)
  1. VENTOLINE                          /00139501/ [Concomitant]
     Active Substance: ALBUTEROL
     Indication: BRONCHOSPASM
     Dosage: UNK(DOSIS: DOSERING EFTER SKRIFTLIG ANVISNING. STYRKE: 0,1 MG/DOSIS)
     Route: 055
     Dates: start: 2014
  2. SEEBRI BREEZHALER [Concomitant]
     Active Substance: GLYCOPYRROLATE
     Indication: CHRONIC OBSTRUCTIVE PULMONARY DISEASE
     Dosage: 44 MICROGRAM, QD(STYRKE: 44 MIKROGRAM)
     Route: 055
     Dates: start: 20150807
  3. DONEPEZIL STADA [Concomitant]
     Indication: PARKINSON^S DISEASE
     Dosage: 10 MILLIGRAM, QD(STYRKE: 10 MG.)
     Route: 048
     Dates: start: 201604
  4. PANTOPRAZOL                        /01263204/ [Concomitant]
     Active Substance: PANTOPRAZOLE SODIUM
     Indication: PROPHYLAXIS AGAINST GASTROINTESTINAL ULCER
     Dosage: 20 MILLIGRAM, QD(STYRKE: 20 MG.)
     Route: 048
     Dates: start: 20180824
  5. ESCITALOPRAM TEVA [Concomitant]
     Active Substance: ESCITALOPRAM OXALATE
     Indication: ANXIETY
     Dosage: 10 MILLIGRAM, QD(STYRKE: 10 MG.)
     Route: 048
     Dates: start: 20171006
  6. UNIKALK BASIC [Concomitant]
     Indication: OSTEOPOROSIS
     Dosage: UNK(DOSIS: 1 TABLET MORGEN OG AFTEN. STYRKE: UKENDT.)
     Route: 048
     Dates: start: 20171006
  7. ATORVASTATIN HEXAL [Concomitant]
     Active Substance: ATORVASTATIN
     Indication: HYPERCHOLESTEROLAEMIA
     Dosage: 40 MILLIGRAM, QD(STYRKE: 40 MG.)
     Route: 048
     Dates: start: 2014
  8. INNOVAIR [Concomitant]
     Active Substance: BECLOMETHASONE DIPROPIONATE\FORMOTEROL
     Indication: CHRONIC OBSTRUCTIVE PULMONARY DISEASE
     Dosage: 4 DOSAGE FORM, QD(STYRKE: 100 + 6 MIKROGRAM/DOSIS)
     Route: 055
     Dates: start: 20141203
  9. ANCOZAN [Concomitant]
     Active Substance: LOSARTAN POTASSIUM
     Indication: HYPERTENSION
     Dosage: 50 MILLIGRAM, QD(STYRKE: 50 MG,)
     Route: 048
     Dates: start: 20180821
  10. ALENDRONATE [Suspect]
     Active Substance: ALENDRONATE SODIUM
     Indication: OSTEOPOROSIS
     Dosage: 70 MILLIGRAM, QW(STYRKE: 70 MG.)
     Route: 048
     Dates: start: 20140422
  11. PARACETAMOL ORIFARM [Concomitant]
     Indication: PAIN
     Dosage: 3000 MILLIGRAM, QD(STYRKE: 500 MG.)
     Route: 048
     Dates: start: 20180824
  12. PREGABALIN SANDOZ [Concomitant]
     Active Substance: PREGABALIN
     Indication: ANXIETY
     Dosage: 50 MILLIGRAM, QD(STYRKE: 25 MG.)
     Route: 048
     Dates: start: 2016
  13. KALEORID [Concomitant]
     Active Substance: POTASSIUM CHLORIDE
     Indication: HYPOKALAEMIA
     Dosage: 1500 MILLIGRAM, QD(STYRKE: 750 MG.)
     Route: 048
     Dates: start: 2014

REACTIONS (4)
  - Fistula [Not Recovered/Not Resolved]
  - Abscess jaw [Unknown]
  - Osteonecrosis of jaw [Not Recovered/Not Resolved]
  - Sequestrectomy [Unknown]

NARRATIVE: CASE EVENT DATE: 201806
